FAERS Safety Report 23546814 (Version 1)
Quarter: 2024Q1

REPORT INFORMATION
  Report Type: Spontaneous
  Country: US (occurrence: US)
  Receive Date: 20240221
  Receipt Date: 20240221
  Transmission Date: 20240409
  Serious: No
  Sender: FDA-Public Use
  Company Number: US-002147023-NVSC2024US035784

PATIENT
  Sex: Male

DRUGS (1)
  1. PLUVICTO [Suspect]
     Active Substance: LUTETIUM LU-177 VIPIVOTIDE TETRAXETAN
     Indication: Chemotherapy
     Dosage: 7400 MBQ, OTHER (FIRST DOSE OF A 6X6 WEEK REGIMEN)
     Route: 042
     Dates: start: 20240129

REACTIONS (1)
  - Haematotoxicity [Unknown]
